FAERS Safety Report 6119379-8 (Version None)
Quarter: 2009Q1

REPORT INFORMATION
  Report Type: 
  Country: None (occurrence: None)
  Receive Date: 20090316
  Receipt Date: 20090306
  Transmission Date: 20090719
  Serious: Yes (Other)
  Sender: FDA-Public Use
  Company Number: A0625079A

PATIENT
  Age: 50 Year
  Sex: Female
  Weight: 150.5 kg

DRUGS (9)
  1. AVANDIA [Suspect]
     Dosage: 4MG PER DAY
     Route: 048
     Dates: start: 20040218, end: 20050517
  2. AVANDAMET [Suspect]
     Indication: DIABETES MELLITUS
     Route: 048
     Dates: start: 20031219, end: 20040217
  3. OMEPRAZOLE [Concomitant]
  4. AMBIEN [Concomitant]
  5. SONATA [Concomitant]
  6. POTASSIUM CHLORIDE [Concomitant]
  7. LUMIGAN [Concomitant]
  8. MOBIC [Concomitant]
  9. ZYRTEC [Concomitant]

REACTIONS (2)
  - ARRHYTHMIA [None]
  - CARDIAC FAILURE CONGESTIVE [None]
